FAERS Safety Report 7349937-4 (Version None)
Quarter: 2011Q1

REPORT INFORMATION
  Report Type: 
  Country: None (occurrence: None)
  Receive Date: 20110309
  Receipt Date: 20110309
  Transmission Date: 20110831
  Serious: Yes (Other)
  Sender: FDA-Public Use
  Company Number: None

PATIENT
  Sex: Female
  Weight: 53.0709 kg

DRUGS (2)
  1. ALPRAZOLAM [Suspect]
     Indication: ANXIETY
     Dosage: TID PO
     Route: 048
     Dates: start: 20090101, end: 20090301
  2. LISINOPRIL [Suspect]
     Indication: HYPERTENSION
     Dosage: BID PO
     Route: 048
     Dates: start: 20070601, end: 20090901

REACTIONS (2)
  - BRONCHOSPASM [None]
  - PANIC ATTACK [None]
